FAERS Safety Report 21657747 (Version 4)
Quarter: 2023Q1

REPORT INFORMATION
  Report Type: Spontaneous
  Country: AU (occurrence: AU)
  Receive Date: 20221129
  Receipt Date: 20230307
  Transmission Date: 20230418
  Serious: Yes (Other)
  Sender: FDA-Public Use
  Company Number: AU-OTSUKA-2022_052798

PATIENT
  Sex: Female

DRUGS (5)
  1. TOLVAPTAN [Suspect]
     Active Substance: TOLVAPTAN
     Indication: Congenital cystic kidney disease
     Dosage: 45 MG
     Route: 065
     Dates: start: 20221118
  2. TOLVAPTAN [Suspect]
     Active Substance: TOLVAPTAN
     Dosage: 15 MG
     Route: 065
     Dates: start: 20221118
  3. AMLODIPINE BESYLATE\OLMESARTAN MEDOXOMIL [Concomitant]
     Active Substance: AMLODIPINE BESYLATE\OLMESARTAN MEDOXOMIL
     Indication: Blood pressure abnormal
     Dosage: 40 MG
     Route: 065
  4. AMLODIPINE BESYLATE\OLMESARTAN MEDOXOMIL [Concomitant]
     Active Substance: AMLODIPINE BESYLATE\OLMESARTAN MEDOXOMIL
     Dosage: 10 MG
     Route: 065
  5. CRESTOR [Concomitant]
     Active Substance: ROSUVASTATIN CALCIUM
     Indication: Blood cholesterol abnormal
     Dosage: 20 MG
     Route: 065

REACTIONS (10)
  - Renal impairment [Unknown]
  - Mobility decreased [Unknown]
  - Throat irritation [Unknown]
  - Vomiting [Unknown]
  - Nausea [Unknown]
  - Gastrooesophageal reflux disease [Unknown]
  - Fatigue [Unknown]
  - Polydipsia [Unknown]
  - Decreased appetite [Unknown]
  - Therapy cessation [Unknown]

NARRATIVE: CASE EVENT DATE: 20221118
